FAERS Safety Report 10090555 (Version 1)
Quarter: 2014Q2

REPORT INFORMATION
  Report Type: Spontaneous
  Country: FR (occurrence: FR)
  Receive Date: 20140421
  Receipt Date: 20140421
  Transmission Date: 20141212
  Serious: Yes (Hospitalization)
  Sender: FDA-Public Use
  Company Number: FR-ABBVIE-14P-056-1228185-00

PATIENT
  Age: 63 Year
  Sex: Male

DRUGS (3)
  1. ZECLAR [Suspect]
     Indication: PRODUCT USED FOR UNKNOWN INDICATION
     Route: 048
     Dates: start: 20140218, end: 20140220
  2. CEFTRIAXONE PANPHARMA [Suspect]
     Indication: PRODUCT USED FOR UNKNOWN INDICATION
     Route: 042
     Dates: start: 20140216, end: 20140221
  3. MORPHINE [Suspect]
     Indication: PRODUCT USED FOR UNKNOWN INDICATION
     Route: 048
     Dates: start: 20140217, end: 20140221

REACTIONS (3)
  - Hyperbilirubinaemia [Recovering/Resolving]
  - Cholestasis [Recovering/Resolving]
  - Hepatocellular injury [Recovering/Resolving]
